FAERS Safety Report 5046997-0 (Version None)
Quarter: 2006Q2

REPORT INFORMATION
  Report Type: 
  Country: None (occurrence: None)
  Receive Date: 20060601
  Receipt Date: 20060323
  Transmission Date: 20061013
  Serious: No
  Sender: FDA-Public Use
  Company Number: 2006PV010814

PATIENT
  Age: 70 Year
  Sex: Female
  Weight: 90.7194 kg

DRUGS (10)
  1. BYETTA [Suspect]
     Indication: DIABETES MELLITUS NON-INSULIN-DEPENDENT
     Dosage: 5 MCG;BID;SC
     Route: 058
     Dates: start: 20060320
  2. VYTORIN [Concomitant]
  3. AMARYL [Concomitant]
  4. GLUCOPHAGE XL [Concomitant]
  5. LASIX [Concomitant]
  6. IMDUR [Concomitant]
  7. TOPROL-XL [Concomitant]
  8. FISH OIL [Concomitant]
  9. MULTIVITAMIN, PLAIN [Concomitant]
  10. PEPCID [Concomitant]

REACTIONS (9)
  - ABDOMINAL PAIN LOWER [None]
  - ASTHENIA [None]
  - BLOOD PRESSURE INCREASED [None]
  - DIARRHOEA [None]
  - DIZZINESS [None]
  - DRUG INEFFECTIVE [None]
  - HEADACHE [None]
  - HOT FLUSH [None]
  - NAUSEA [None]
